FAERS Safety Report 12298967 (Version 1)
Quarter: 2016Q2

REPORT INFORMATION
  Report Type: Spontaneous
  Country: US (occurrence: US)
  Receive Date: 20160425
  Receipt Date: 20160425
  Transmission Date: 20160815
  Serious: No
  Sender: FDA-Public Use
  Company Number: US-ASTRAZENECA-2014SE59341

PATIENT
  Age: 69 Year
  Sex: Male
  Weight: 113.4 kg

DRUGS (2)
  1. METFORMIN [Concomitant]
     Active Substance: METFORMIN HYDROCHLORIDE
     Indication: TYPE 2 DIABETES MELLITUS
  2. BYDUREON [Suspect]
     Active Substance: EXENATIDE
     Indication: TYPE 2 DIABETES MELLITUS
     Route: 065
     Dates: start: 2014

REACTIONS (7)
  - Decreased appetite [Unknown]
  - Weight decreased [Recovered/Resolved]
  - Injection site pain [Recovered/Resolved]
  - Dyspepsia [Unknown]
  - Product quality issue [Unknown]
  - Constipation [Unknown]
  - Injection site haemorrhage [Recovered/Resolved]

NARRATIVE: CASE EVENT DATE: 2014
